FAERS Safety Report 10658404 (Version 1)
Quarter: 2014Q4

REPORT INFORMATION
  Report Type: Spontaneous
  Country: BR (occurrence: BR)
  Receive Date: 20141217
  Receipt Date: 20141217
  Transmission Date: 20150529
  Serious: Yes (Other)
  Sender: FDA-Public Use
  Company Number: BR-JNJFOC-20141210253

PATIENT
  Age: 28 Year
  Sex: Female
  Weight: 78 kg

DRUGS (7)
  1. PREDNISONE. [Concomitant]
     Active Substance: PREDNISONE
     Route: 048
  2. REMICADE [Suspect]
     Active Substance: INFLIXIMAB
     Indication: CROHN^S DISEASE
     Dosage: SECOND ADMINISTRATION
     Route: 042
     Dates: start: 20141203
  3. CIPROFLOXACIN. [Concomitant]
     Active Substance: CIPROFLOXACIN
     Route: 048
  4. REMICADE [Suspect]
     Active Substance: INFLIXIMAB
     Indication: CROHN^S DISEASE
     Route: 042
     Dates: start: 20141119
  5. MESALAZIN [Concomitant]
     Active Substance: MESALAMINE
     Route: 048
  6. SULFASALAZINE. [Concomitant]
     Active Substance: SULFASALAZINE
     Route: 048
  7. AZATHIOPRINE. [Concomitant]
     Active Substance: AZATHIOPRINE
     Route: 048

REACTIONS (7)
  - Infusion related reaction [Recovered/Resolved]
  - Blood pressure abnormal [Recovered/Resolved]
  - Adverse event [Unknown]
  - Somnolence [Recovered/Resolved]
  - Heart rate increased [Recovered/Resolved]
  - Palpitations [Recovered/Resolved]
  - Chest discomfort [Recovered/Resolved]

NARRATIVE: CASE EVENT DATE: 2014
